FAERS Safety Report 4481352-3 (Version None)
Quarter: 2004Q4

REPORT INFORMATION
  Report Type: 
  Country: None (occurrence: None)
  Receive Date: 20041021
  Receipt Date: 20041008
  Transmission Date: 20050328
  Serious: Yes (Life-Threatening, Hospitalization)
  Sender: FDA-Public Use
  Company Number: FR-GLAXOSMITHKLINE-B0347622A

PATIENT
  Weight: 2.7 kg

DRUGS (4)
  1. RETROVIR [Suspect]
     Indication: ANTIVIRAL PROPHYLAXIS
     Route: 048
     Dates: start: 20040204, end: 20040217
  2. COMBIVIR [Suspect]
     Indication: HIV INFECTION
  3. RETROVIR [Suspect]
     Dates: start: 20040204, end: 20040204
  4. VIRAMUNE [Concomitant]
     Indication: HIV INFECTION

REACTIONS (3)
  - ANAEMIA MACROCYTIC [None]
  - COOMBS TEST NEGATIVE [None]
  - DRUG EXPOSURE DURING PREGNANCY [None]
